FAERS Safety Report 8286941-6 (Version None)
Quarter: 2012Q2

REPORT INFORMATION
  Report Type: 
  Country: None (occurrence: None)
  Receive Date: 20120416
  Receipt Date: 20120406
  Transmission Date: 20120825
  Serious: Yes (Hospitalization)
  Sender: FDA-Public Use
  Company Number: FR-SANOFI-AVENTIS-2012SA015013

PATIENT
  Age: 58 Year
  Sex: Male
  Weight: 72 kg

DRUGS (2)
  1. JEVTANA KIT [Suspect]
     Indication: PROSTATE CANCER
     Dosage: STRENGTH: 60 MG/1.5 ML
     Route: 042
     Dates: start: 20120228
  2. NEULASTA [Concomitant]
     Indication: PROPHYLAXIS
     Dates: start: 20120305, end: 20120305

REACTIONS (3)
  - BLOOD PRESSURE DECREASED [None]
  - CORONARY ARTERY STENOSIS [None]
  - CHEST PAIN [None]
